FAERS Safety Report 4715044-X (Version None)
Quarter: 2005Q3

REPORT INFORMATION
  Report Type: 
  Country: None (occurrence: None)
  Receive Date: 20050715
  Receipt Date: 20050706
  Transmission Date: 20060218
  Serious: Yes (Hospitalization, Other)
  Sender: FDA-Public Use
  Company Number: BR-JNJFOC-20050604328

PATIENT
  Age: 27 Year
  Sex: Female
  Weight: 52 kg

DRUGS (2)
  1. ORTHO EVRA [Suspect]
     Indication: CONTRACEPTION
     Route: 062
     Dates: start: 20050101, end: 20050201
  2. FLUOXETINA [Concomitant]
     Indication: DEPRESSION

REACTIONS (6)
  - DRUG EXPOSURE DURING PREGNANCY [None]
  - HAEMORRHAGE [None]
  - METRORRHAGIA [None]
  - PREMATURE SEPARATION OF PLACENTA [None]
  - SYNCOPE [None]
  - UNINTENDED PREGNANCY [None]
